FAERS Safety Report 22600537 (Version 1)
Quarter: 2023Q2

REPORT INFORMATION
  Report Type: Spontaneous
  Country: FR (occurrence: FR)
  Receive Date: 20230614
  Receipt Date: 20230614
  Transmission Date: 20230721
  Serious: Yes (Other)
  Sender: FDA-Public Use
  Company Number: None

PATIENT
  Age: 34 Year
  Sex: Male

DRUGS (1)
  1. GADOBUTROL [Suspect]
     Active Substance: GADOBUTROL
     Indication: Scan with contrast
     Dosage: 1 DF
     Route: 042
     Dates: start: 20210720, end: 20210720

REACTIONS (4)
  - Dyspnoea [Recovered/Resolved]
  - Erythema [Recovered/Resolved]
  - Throat tightness [Recovered/Resolved]
  - Feeling hot [Recovered/Resolved]

NARRATIVE: CASE EVENT DATE: 20210720
